FAERS Safety Report 6556653-5 (Version None)
Quarter: 2010Q1

REPORT INFORMATION
  Report Type: 
  Country: None (occurrence: None)
  Receive Date: 20100128
  Receipt Date: 20100118
  Transmission Date: 20100710
  Serious: Yes (Other)
  Sender: FDA-Public Use
  Company Number: BR-ABBOTT-10P-020-0619964-00

PATIENT
  Sex: Female
  Weight: 46 kg

DRUGS (6)
  1. HUMIRA [Suspect]
     Indication: RHEUMATOID ARTHRITIS
     Route: 058
     Dates: end: 20091201
  2. LEFLUNOMIDE [Concomitant]
     Indication: ARTHRITIS
     Route: 048
     Dates: start: 20020101
  3. CYCLOSPORINE [Concomitant]
     Indication: ARTHRITIS
     Route: 048
     Dates: start: 20040101
  4. CELECOXIB [Concomitant]
     Indication: ARTHRITIS
     Route: 048
     Dates: start: 20050101
  5. OMEPRAZOLE [Concomitant]
     Indication: PROPHYLAXIS AGAINST GASTROINTESTINAL ULCER
     Route: 048
     Dates: start: 20020101
  6. CALCIUM [Concomitant]
     Indication: OSTEOPOROSIS
     Route: 048
     Dates: start: 20000101

REACTIONS (7)
  - ANAEMIA [None]
  - ARTHRALGIA [None]
  - BONE EROSION [None]
  - BRONCHITIS [None]
  - DIARRHOEA [None]
  - INFLUENZA [None]
  - WEIGHT DECREASED [None]
